FAERS Safety Report 7807791-8 (Version None)
Quarter: 2011Q4

REPORT INFORMATION
  Report Type: 
  Country: None (occurrence: None)
  Receive Date: 20111011
  Receipt Date: 20111007
  Transmission Date: 20120403
  Serious: Yes (Hospitalization)
  Sender: FDA-Public Use
  Company Number: DE-SANOFI-AVENTIS-2011SA054729

PATIENT
  Age: 70 Year
  Sex: Male
  Weight: 81 kg

DRUGS (6)
  1. RAMIPRIL [Concomitant]
     Route: 048
  2. MARCUMAR [Concomitant]
     Route: 048
  3. MULTAQ [Suspect]
     Indication: ATRIAL FIBRILLATION
     Route: 048
     Dates: start: 20100601, end: 20110401
  4. CARVEDILOL [Concomitant]
     Route: 048
  5. SIMVASTATIN [Concomitant]
     Route: 048
  6. HYDROCHLOROTHIAZIDE/RAMIPRIL [Concomitant]
     Route: 048

REACTIONS (8)
  - DYSPNOEA AT REST [None]
  - RENAL FAILURE CHRONIC [None]
  - TOTAL LUNG CAPACITY DECREASED [None]
  - DRUG INTOLERANCE [None]
  - ALVEOLITIS ALLERGIC [None]
  - LUNG INFILTRATION [None]
  - PULMONARY FIBROSIS [None]
  - RESPIRATORY FAILURE [None]
